FAERS Safety Report 25111725 (Version 1)
Quarter: 2025Q1

REPORT INFORMATION
  Report Type: Spontaneous
  Country: GB (occurrence: GB)
  Receive Date: 20250324
  Receipt Date: 20250324
  Transmission Date: 20250409
  Serious: Yes (Life-Threatening)
  Sender: ACCORD
  Company Number: None

PATIENT
  Age: 66 Year
  Sex: Male
  Weight: 64 kg

DRUGS (7)
  1. ROSUVASTATIN CALCIUM [Suspect]
     Active Substance: ROSUVASTATIN CALCIUM
     Indication: Product used for unknown indication
     Dates: start: 20241024, end: 20241030
  2. AMOXICILLIN [Concomitant]
     Active Substance: AMOXICILLIN
     Indication: Lung consolidation
     Dates: start: 20240828, end: 20240926
  3. MEBEVERINE [Concomitant]
     Active Substance: MEBEVERINE
     Indication: Abdominal pain
     Dates: start: 20240903
  4. ATORVASTATIN [Concomitant]
     Active Substance: ATORVASTATIN
     Dates: start: 20241008, end: 20241024
  5. PREDNISOLONE [Concomitant]
     Active Substance: PREDNISOLONE
     Indication: Adverse drug reaction
     Dates: start: 20241016, end: 20241114
  6. COMIRNATY [Concomitant]
     Dates: start: 20241102, end: 20241102
  7. PREDNISOLONE [Concomitant]
     Active Substance: PREDNISOLONE
     Indication: Adverse drug reaction
     Dates: start: 20240828, end: 20240926

REACTIONS (1)
  - Dyspnoea [Recovered/Resolved]

NARRATIVE: CASE EVENT DATE: 20241025
